FAERS Safety Report 14551739 (Version 4)
Quarter: 2018Q4

REPORT INFORMATION
  Report Type: Report from Study
  Country: RU (occurrence: RU)
  Receive Date: 20180220
  Receipt Date: 20181228
  Transmission Date: 20190204
  Serious: Yes (Hospitalization)
  Sender: FDA-Public Use
  Company Number: RU-ROCHE-2070387

PATIENT
  Age: 24 Year
  Sex: Female
  Weight: 64 kg

DRUGS (16)
  1. LYSOZYME [Concomitant]
     Active Substance: LYSOZYME
     Indication: COUGH
     Dosage: 1 TABLET
     Route: 048
     Dates: start: 20180104, end: 20180118
  2. INDOMETHACIN. [Concomitant]
     Active Substance: INDOMETHACIN
     Dosage: DOSE UNIT OTHER
     Route: 050
     Dates: start: 20180201, end: 20180220
  3. OFLOXACIN. [Concomitant]
     Active Substance: OFLOXACIN
     Dosage: DOSE UNIT ML
     Route: 050
     Dates: start: 20180221, end: 20180307
  4. NEPAFENAC [Concomitant]
     Active Substance: NEPAFENAC
     Dosage: DOSE UNIT ML
     Route: 050
     Dates: start: 20180221, end: 20180307
  5. VEMURAFENIB. [Suspect]
     Active Substance: VEMURAFENIB
     Indication: MALIGNANT MELANOMA
     Dosage: DATE OF MOST RECENT DOSE OF VEMURAFENIB PRIOR TO SAE ONSET: 31/JAN/2018.
     Route: 048
     Dates: start: 20171011
  6. COBIMETINIB. [Suspect]
     Active Substance: COBIMETINIB
     Indication: MALIGNANT MELANOMA
     Dosage: DATE OF MOST RECENT DOSE OF COBIMETINIB PRIOR TO SAE ONSET: 31/JAN/2018, 60 MG
     Route: 048
     Dates: start: 20171011
  7. ZOLEDRONIC ACID [Concomitant]
     Active Substance: ZOLEDRONIC ACID
     Indication: METASTASES TO BONE
     Route: 042
     Dates: start: 20171115
  8. AMBROXOL [Concomitant]
     Active Substance: AMBROXOL
     Indication: COUGH
     Route: 048
     Dates: start: 20180104, end: 20180118
  9. MIDRIMAX [Concomitant]
     Dosage: DOSE UNIT OTHER
     Route: 050
     Dates: start: 20180221, end: 20180302
  10. OFTAN DEXAMETHASON [Concomitant]
     Dosage: DOSE UNIT ML
     Route: 050
     Dates: start: 20180221, end: 20180307
  11. ATEZOLIZUMAB. [Suspect]
     Active Substance: ATEZOLIZUMAB
     Indication: MALIGNANT MELANOMA
     Dosage: DATE OF MOST RECENT DOSE OF BLINDED ATEZOLIZUMAB PRIOR TO AE ONSET 18/JAN/2018 (250 ML)
     Route: 042
     Dates: start: 20171108
  12. OFTALMOFERON [Concomitant]
     Dosage: DOSE UNIT ML
     Route: 050
     Dates: start: 20180201, end: 20180220
  13. MAXITROL [Concomitant]
     Active Substance: DEXAMETHASONE\NEOMYCIN SULFATE\POLYMYXIN B SULFATE
     Dosage: DOSE UNIT OTHER
     Route: 050
     Dates: start: 20180201, end: 20180220
  14. CORNEREGEL [Concomitant]
     Active Substance: DEXPANTHENOL
     Dosage: DOSE UNIT MG
     Route: 050
     Dates: start: 20180221, end: 20180325
  15. PYRIDOXINE [Concomitant]
     Active Substance: PYRIDOXINE
     Indication: COUGH
     Dosage: 1 TABLET
     Route: 048
     Dates: start: 20180104, end: 20180118
  16. PHENYLEPHRINE [Concomitant]
     Active Substance: PHENYLEPHRINE\PHENYLEPHRINE HYDROCHLORIDE
     Dosage: DOSE UNIT ML
     Route: 050
     Dates: start: 20180201, end: 20180220

REACTIONS (1)
  - Uveitis [Recovered/Resolved]

NARRATIVE: CASE EVENT DATE: 20180201
